FAERS Safety Report 4353041-7 (Version None)
Quarter: 2004Q2

REPORT INFORMATION
  Report Type: 
  Country: None (occurrence: None)
  Receive Date: 20040430
  Receipt Date: 20040209
  Transmission Date: 20050107
  Serious: No
  Sender: FDA-Public Use
  Company Number: 204076

PATIENT
  Age: 42 Year
  Sex: Female
  Weight: 62.6 kg

DRUGS (2)
  1. XOLAIR [Suspect]
     Indication: ASTHMA
     Dosage: 225 MG, Q2W
     Dates: start: 20031104, end: 20031222
  2. ZYRTEC [Concomitant]

REACTIONS (4)
  - CHEST DISCOMFORT [None]
  - DYSPEPSIA [None]
  - DYSPNOEA [None]
  - TACHYCARDIA [None]
